FAERS Safety Report 13919034 (Version 4)
Quarter: 2018Q2

REPORT INFORMATION
  Report Type: Spontaneous
  Country: US (occurrence: US)
  Receive Date: 20170830
  Receipt Date: 20180608
  Transmission Date: 20180711
  Serious: Yes (Hospitalization, Other)
  Sender: FDA-Public Use
  Company Number: US-ASTRAZENECA-2017SE86529

PATIENT
  Age: 77 Year
  Sex: Female
  Weight: 48.5 kg

DRUGS (14)
  1. VITAMIN B [Concomitant]
     Active Substance: VITAMIN B
     Indication: ASTHENIA
     Route: 048
  2. CARVEDILOL. [Concomitant]
     Active Substance: CARVEDILOL
     Route: 048
  3. LOW DOSE ASPIRIN [Concomitant]
     Active Substance: ASPIRIN
     Indication: ANTICOAGULANT THERAPY
     Route: 048
     Dates: start: 2017
  4. BIOTIN [Concomitant]
     Active Substance: BIOTIN
     Indication: NAIL DISORDER
     Dosage: DAILY
     Route: 065
  5. JUICE PLUS [Concomitant]
     Active Substance: DIETARY SUPPLEMENT
     Indication: SUPPLEMENTATION THERAPY
     Dosage: TWO TIMES A DAY
     Route: 048
  6. FUROSEMIDE. [Concomitant]
     Active Substance: FUROSEMIDE
     Indication: FLUID RETENTION
     Route: 048
     Dates: start: 2015
  7. QUINAPRIL. [Concomitant]
     Active Substance: QUINAPRIL
     Indication: BLOOD PRESSURE ABNORMAL
     Route: 048
  8. CALTRATE [Concomitant]
     Active Substance: CALCIUM CARBONATE
     Indication: BONE DISORDER
     Dosage: TWO TIMES A DAY
     Route: 048
  9. CLARITIN [Concomitant]
     Active Substance: LORATADINE
     Indication: MULTIPLE ALLERGIES
     Dosage: DAILY
     Route: 048
     Dates: start: 2016
  10. BIOTIN [Concomitant]
     Active Substance: BIOTIN
     Indication: HAIR DISORDER
     Dosage: DAILY
     Route: 065
  11. TEMAZEPAM. [Concomitant]
     Active Substance: TEMAZEPAM
     Indication: SLEEP DISORDER
     Route: 048
  12. TUDORZA PRESSAIR [Suspect]
     Active Substance: ACLIDINIUM BROMIDE
     Indication: CHRONIC OBSTRUCTIVE PULMONARY DISEASE
     Dosage: 400 MCG ONE PUFF TWICE PER DAY
     Route: 055
     Dates: start: 20150825
  13. POTASSIUM [Concomitant]
     Active Substance: POTASSIUM
     Indication: ILL-DEFINED DISORDER
     Route: 048
     Dates: start: 2015
  14. ATORVASTATIN [Concomitant]
     Active Substance: ATORVASTATIN
     Indication: BLOOD CHOLESTEROL ABNORMAL
     Route: 048

REACTIONS (14)
  - Visual impairment [Unknown]
  - Early satiety [Unknown]
  - Internal haemorrhage [Unknown]
  - Decreased appetite [Unknown]
  - Lung neoplasm malignant [Unknown]
  - Confusional state [Unknown]
  - Weight decreased [Unknown]
  - Device malfunction [Unknown]
  - Hernia [Unknown]
  - Blood pressure systolic decreased [Unknown]
  - Heart rate irregular [Unknown]
  - Intentional product misuse [Unknown]
  - Memory impairment [Unknown]
  - Post procedural haemorrhage [Unknown]

NARRATIVE: CASE EVENT DATE: 2015
